FAERS Safety Report 5143226-4 (Version None)
Quarter: 2006Q4

REPORT INFORMATION
  Report Type: 
  Country: None (occurrence: None)
  Receive Date: 20061103
  Receipt Date: 20061013
  Transmission Date: 20070319
  Serious: Yes (Hospitalization)
  Sender: FDA-Public Use
  Company Number: US-BRISTOL-MYERS SQUIBB COMPANY-13540562

PATIENT
  Age: 47 Year
  Sex: Female
  Weight: 106 kg

DRUGS (7)
  1. DEFINITY [Suspect]
     Indication: STRESS ECHOCARDIOGRAM
     Route: 042
     Dates: start: 20061012, end: 20061012
  2. DEFINITY [Suspect]
     Indication: PREOPERATIVE CARE
     Route: 042
     Dates: start: 20061012, end: 20061012
  3. ADVAIR DISKUS 100/50 [Concomitant]
     Dosage: TAKEN MORNING OF ECHOCARDIOGRAM
  4. ALBUTEROL [Concomitant]
     Route: 055
  5. ZOLOFT [Concomitant]
     Dosage: TAKEN MORNING OF ECHOCARDIOGRAM
  6. PRILOSEC [Concomitant]
     Dosage: TAKEN MORNING OF ECHOCARDIOGRAM
  7. RANITIDINE [Concomitant]

REACTIONS (1)
  - ANAPHYLACTIC SHOCK [None]
